FAERS Safety Report 6631383-X (Version None)
Quarter: 2010Q1

REPORT INFORMATION
  Report Type: 
  Country: None (occurrence: None)
  Receive Date: 20100311
  Receipt Date: 20100311
  Transmission Date: 20100710
  Serious: No
  Sender: FDA-Public Use
  Company Number: None

PATIENT
  Age: 67 Year
  Sex: Female
  Weight: 59.4212 kg

DRUGS (9)
  1. ALOXI [Suspect]
     Indication: NAUSEA
     Dosage: 250 MICROGRAMS IV
     Route: 042
     Dates: start: 20091103, end: 20100126
  2. ALOXI [Suspect]
     Indication: VOMITING
     Dosage: 250 MICROGRAMS IV
     Route: 042
     Dates: start: 20091103, end: 20100126
  3. IMODIUM [Concomitant]
  4. PHENERGAN HCL [Concomitant]
  5. TRAMADOL HCL [Concomitant]
  6. ATIVAN [Concomitant]
  7. PRILOSEC [Concomitant]
  8. ATROPINE [Concomitant]
  9. DECADRON [Concomitant]

REACTIONS (2)
  - BLISTER [None]
  - RASH PRURITIC [None]
